FAERS Safety Report 25741572 (Version 1)
Quarter: 2025Q3

REPORT INFORMATION
  Report Type: Report from Study
  Country: US (occurrence: US)
  Receive Date: 20250829
  Receipt Date: 20250829
  Transmission Date: 20251021
  Serious: Yes (Other)
  Sender: TEVA
  Company Number: US-TEVA-VS-3365684

PATIENT
  Age: 72 Year
  Sex: Female

DRUGS (7)
  1. AUSTEDO [Suspect]
     Active Substance: DEUTETRABENAZINE
     Indication: Tardive dyskinesia
     Route: 065
     Dates: start: 20250730, end: 20250730
  2. BUSPIRONE [Concomitant]
     Active Substance: BUSPIRONE HYDROCHLORIDE
     Indication: Anxiety
     Route: 065
     Dates: start: 20250425
  3. CLONAZEPAM [Concomitant]
     Active Substance: CLONAZEPAM
     Indication: Anxiety
     Route: 065
     Dates: start: 20250425
  4. LAMOTRIGINE [Concomitant]
     Active Substance: LAMOTRIGINE
     Indication: Psychotic disorder
     Route: 065
     Dates: start: 20250425
  5. MIRTAZAPINE [Concomitant]
     Active Substance: MIRTAZAPINE
     Indication: Insomnia
     Route: 065
     Dates: start: 20250425
  6. ROPINIROLE [Concomitant]
     Active Substance: ROPINIROLE
     Indication: Movement disorder
     Route: 065
     Dates: start: 20250425
  7. DAYVIGO [Concomitant]
     Active Substance: LEMBOREXANT
     Indication: Insomnia
     Route: 065
     Dates: start: 20250425

REACTIONS (2)
  - Vomiting [Unknown]
  - Dyskinesia [Unknown]

NARRATIVE: CASE EVENT DATE: 20250730
